FAERS Safety Report 4852377-0 (Version None)
Quarter: 2005Q4

REPORT INFORMATION
  Report Type: 
  Country: None (occurrence: None)
  Receive Date: 20051213
  Receipt Date: 20051207
  Transmission Date: 20060501
  Serious: Yes (Other)
  Sender: FDA-Public Use
  Company Number: PHBS2005KR18065

PATIENT
  Sex: Male

DRUGS (1)
  1. BENAZEPRIL HCL [Suspect]
     Indication: HYPERTENSION
     Dosage: 5 MG/DAY
     Route: 048

REACTIONS (2)
  - BLOOD PRESSURE ABNORMAL [None]
  - CEREBRAL HAEMORRHAGE [None]
